FAERS Safety Report 7094645-0 (Version None)
Quarter: 2010Q4

REPORT INFORMATION
  Report Type: 
  Country: None (occurrence: None)
  Receive Date: 20101110
  Receipt Date: 20101104
  Transmission Date: 20110411
  Serious: Yes (Other)
  Sender: FDA-Public Use
  Company Number: JP-PFIZER INC-2010128969

PATIENT
  Age: 66 Year
  Sex: Male

DRUGS (12)
  1. LYRICA [Suspect]
     Dosage: UNK
     Route: 048
  2. CARBIDOPA AND LEVODOPA [Concomitant]
     Indication: PARKINSON'S DISEASE
     Dosage: 100 MG, 6X/DAY
     Route: 048
     Dates: start: 20080408
  3. ELDEPRYL [Concomitant]
     Indication: PARKINSON'S DISEASE
     Dosage: 2.5 MG, 1X/DAY
     Route: 048
     Dates: start: 20080408
  4. REQUIP [Concomitant]
     Indication: PARKINSON'S DISEASE
     Dosage: 1 MG, 6X/DAY
     Route: 048
     Dates: start: 20080408
  5. COMTAN [Concomitant]
     Indication: PARKINSON'S DISEASE
     Dosage: 100 MG, 6X/DAY
     Route: 048
     Dates: start: 20100408
  6. ZONISAMIDE [Concomitant]
     Indication: PARKINSON'S DISEASE
     Dosage: 25 MG, 1X/DAY
     Route: 048
     Dates: start: 20080408
  7. DEPAS [Concomitant]
     Indication: NEUROSIS
     Dosage: 0.5 MG, 1X/DAY
     Route: 048
     Dates: start: 20100427
  8. SYMMETREL [Concomitant]
     Indication: PARKINSON'S DISEASE
     Dosage: 50 MG, 1X/DAY
     Route: 048
     Dates: start: 20100629
  9. ROHYPNOL [Concomitant]
     Indication: NEUROSIS
     Dosage: 1 MG, 1X/DAY
     Route: 048
     Dates: start: 20100713
  10. AMARYL [Concomitant]
     Indication: DIABETES MELLITUS
     Dosage: 1 MG, 1X/DAY
     Route: 048
     Dates: start: 20071225
  11. NEO VITACAIN [Concomitant]
     Indication: NEUROPATHY PERIPHERAL
     Dosage: 10 ML, WEEKLY
     Dates: start: 20100406
  12. BETAMETHASONE [Concomitant]
     Indication: NEUROPATHY PERIPHERAL
     Dosage: 5 MG, WEEKLY
     Dates: start: 20100406

REACTIONS (1)
  - HAEMATURIA [None]
